APPROVED DRUG PRODUCT: HYDROXYUREA
Active Ingredient: HYDROXYUREA
Strength: 250MG
Dosage Form/Route: CAPSULE;ORAL
Application: A075020 | Product #002
Applicant: BARR LABORATORIES INC
Approved: Jun 26, 2000 | RLD: No | RS: No | Type: DISCN